FAERS Safety Report 4515546-5 (Version None)
Quarter: 2004Q4

REPORT INFORMATION
  Report Type: 
  Country: None (occurrence: None)
  Receive Date: 20041126
  Receipt Date: 20041116
  Transmission Date: 20050328
  Serious: Yes (Disabling, Other)
  Sender: FDA-Public Use
  Company Number: 2004093947

PATIENT
  Age: 81 Year
  Sex: Female
  Weight: 55.7924 kg

DRUGS (2)
  1. ZYVOX [Suspect]
     Indication: CYSTITIS
     Dosage: EVERY DAY, ORAL
     Route: 048
     Dates: start: 20041026, end: 20041101
  2. CHLORDIAZEPOXIDE [Concomitant]

REACTIONS (2)
  - GLOSSODYNIA [None]
  - ORAL DISCOMFORT [None]
